FAERS Safety Report 5006766-4 (Version None)
Quarter: 2006Q2

REPORT INFORMATION
  Report Type: 
  Country: None (occurrence: None)
  Receive Date: 20060516
  Receipt Date: 20060502
  Transmission Date: 20061013
  Serious: Yes (Life-Threatening, Hospitalization, Other)
  Sender: FDA-Public Use
  Company Number: 2006RR-02180

PATIENT
  Age: 66 Year
  Weight: 80 kg

DRUGS (5)
  1. METFORMIN HCL [Suspect]
     Indication: DIABETES MELLITUS NON-INSULIN-DEPENDENT
     Dosage: 850 MG, BID, ORAL
     Route: 048
     Dates: end: 20060417
  2. GLICLAZIDE (GLICLAZIDE) [Concomitant]
  3. AMIODARONE HCL [Concomitant]
  4. CIPROFLOXACIN [Concomitant]
  5. FLOXACILLIN SODIUM [Concomitant]

REACTIONS (4)
  - HAEMODIALYSIS [None]
  - LACTIC ACIDOSIS [None]
  - MULTI-ORGAN FAILURE [None]
  - RENAL FAILURE [None]
